FAERS Safety Report 24727831 (Version 1)
Quarter: 2024Q4

REPORT INFORMATION
  Report Type: Spontaneous
  Country: US (occurrence: None)
  Receive Date: 20241211
  Receipt Date: 20241211
  Transmission Date: 20250114
  Serious: Yes (Death, Hospitalization, Congenital Anomaly)
  Sender: Public
  Company Number: None

PATIENT
  Age: 16 Year
  Sex: Female
  Weight: 50.4 kg

DRUGS (3)
  1. TERBUTALINE [Suspect]
     Active Substance: TERBUTALINE
     Indication: Premature labour
     Route: 030
     Dates: start: 20240802, end: 20240802
  2. NIFEDIPINE [Concomitant]
     Active Substance: NIFEDIPINE
  3. FERROUS SULFATE [Concomitant]
     Active Substance: FERROUS SULFATE

REACTIONS (10)
  - Maternal exposure during pregnancy [None]
  - Foetal death [None]
  - Foetal heart rate decreased [None]
  - Caesarean section [None]
  - Epistaxis [None]
  - Nonspecific reaction [None]
  - Overdose [None]
  - Foetal distress syndrome [None]
  - Umbilical cord abnormality [None]
  - Congenital musculoskeletal disorder of skull [None]

NARRATIVE: CASE EVENT DATE: 20240802
